FAERS Safety Report 9527049 (Version 5)
Quarter: 2014Q2

REPORT INFORMATION
  Report Type: Spontaneous
  Country: JP (occurrence: JP)
  Receive Date: 20130916
  Receipt Date: 20140429
  Transmission Date: 20141212
  Serious: Yes (Other)
  Sender: FDA-Public Use
  Company Number: JP-ROCHE-1274803

PATIENT
  Age: 70 Year
  Sex: Female
  Weight: 52 kg

DRUGS (2)
  1. BONVIVA [Suspect]
     Indication: OSTEOPOROSIS
     Dosage: DOSAGE IS UNCERTAIN.
     Route: 042
     Dates: start: 20130904, end: 20130904
  2. PARIET [Concomitant]
     Indication: BARRETT^S OESOPHAGUS
     Route: 048
     Dates: start: 20130730

REACTIONS (9)
  - Loss of consciousness [Recovering/Resolving]
  - Dementia with Lewy bodies [Recovering/Resolving]
  - Petit mal epilepsy [Recovering/Resolving]
  - Muscular weakness [Recovering/Resolving]
  - Nausea [Recovering/Resolving]
  - Asthenia [Recovering/Resolving]
  - White matter lesion [Not Recovered/Not Resolved]
  - Sinusitis [Not Recovered/Not Resolved]
  - Sinus arrest [Not Recovered/Not Resolved]
